FAERS Safety Report 24542378 (Version 1)
Quarter: 2024Q4

REPORT INFORMATION
  Report Type: Spontaneous
  Country: US (occurrence: US)
  Receive Date: 20241023
  Receipt Date: 20241023
  Transmission Date: 20250114
  Serious: Yes (Other)
  Sender: DR REDDYS
  Company Number: US-DRL-USA-LIT/USA/24/0015648

PATIENT
  Age: 39 Year
  Sex: Female

DRUGS (2)
  1. IMATINIB [Suspect]
     Active Substance: IMATINIB
     Indication: Chronic myeloid leukaemia
     Dosage: EVERY OTHER DAY FORTHE FIRST 2 MONTHS
  2. IMATINIB [Suspect]
     Active Substance: IMATINIB

REACTIONS (1)
  - Chronic cutaneous lupus erythematosus [Unknown]
